FAERS Safety Report 5156410-0 (Version None)
Quarter: 2006Q4

REPORT INFORMATION
  Report Type: 
  Country: None (occurrence: None)
  Receive Date: 20061122
  Receipt Date: 20061116
  Transmission Date: 20070319
  Serious: Yes (Hospitalization)
  Sender: FDA-Public Use
  Company Number: US-ABBOTT-06P-163-0350679-00

PATIENT
  Age: 77 Year
  Sex: Male

DRUGS (5)
  1. ADALIMUMAB [Suspect]
     Indication: DRUG USE FOR UNKNOWN INDICATION
     Route: 058
     Dates: start: 20040901
  2. METHOTREXATE [Concomitant]
     Indication: RHEUMATOID ARTHRITIS
     Dates: start: 19940101
  3. HYDROXYCHLOROQUINE SULFATE [Concomitant]
     Indication: RHEUMATOID ARTHRITIS
     Dates: start: 19940101
  4. SULFASALAZINE [Concomitant]
     Indication: RHEUMATOID ARTHRITIS
     Dates: start: 19940101
  5. MINOCYCLINE HCL [Concomitant]
     Indication: RHEUMATOID ARTHRITIS
     Dates: start: 19940101

REACTIONS (1)
  - PACHYMENINGITIS [None]
